FAERS Safety Report 6111692-3 (Version None)
Quarter: 2009Q1

REPORT INFORMATION
  Report Type: 
  Country: None (occurrence: None)
  Receive Date: 20090311
  Receipt Date: 20090226
  Transmission Date: 20090719
  Serious: Yes (Hospitalization)
  Sender: FDA-Public Use
  Company Number: JP-ROCHE-614654

PATIENT
  Age: 47 Year
  Sex: Female

DRUGS (3)
  1. TAMIFLU [Suspect]
     Route: 048
     Dates: start: 20090203, end: 20090207
  2. ONON [Suspect]
     Indication: DRUG USE FOR UNKNOWN INDICATION
     Dosage: ORAL FORMULATION (NOT OTHERWISE SPECIFIED)
     Route: 048
  3. ALLELOCK [Suspect]
     Indication: DRUG USE FOR UNKNOWN INDICATION
     Route: 048

REACTIONS (1)
  - EPILEPSY [None]
